FAERS Safety Report 15311845 (Version 1)
Quarter: 2018Q3

REPORT INFORMATION
  Report Type: Spontaneous
  Country: BR (occurrence: BR)
  Receive Date: 20180823
  Receipt Date: 20180823
  Transmission Date: 20181010
  Serious: Yes (Other)
  Sender: FDA-Public Use
  Company Number: BR-PFIZER INC-2018332269

PATIENT
  Age: 65 Year
  Sex: Female

DRUGS (1)
  1. LORAX [Suspect]
     Active Substance: LORAZEPAM
     Dosage: 2 DF, DAILY
     Dates: start: 1998

REACTIONS (7)
  - Nausea [Unknown]
  - Fatigue [Unknown]
  - Feeling abnormal [Unknown]
  - Bone disorder [Unknown]
  - Neoplasm malignant [Unknown]
  - Dizziness [Unknown]
  - Asthenia [Unknown]
